FAERS Safety Report 17292726 (Version 1)
Quarter: 2020Q1

REPORT INFORMATION
  Report Type: Spontaneous
  Country: US (occurrence: US)
  Receive Date: 20200119
  Receipt Date: 20200119
  Transmission Date: 20200409
  Serious: No
  Sender: FDA-Public Use
  Company Number: None

PATIENT
  Age: 43 Year
  Sex: Female
  Weight: 72 kg

DRUGS (2)
  1. SOLOSEC [Suspect]
     Active Substance: SECNIDAZOLE
     Indication: OVERGROWTH BACTERIAL
     Route: 048
     Dates: start: 20181220, end: 20181220
  2. ST. JOHN;S WART [Concomitant]

REACTIONS (8)
  - Diarrhoea [None]
  - Bacterial vaginosis [None]
  - Headache [None]
  - Pruritus genital [None]
  - Taste disorder [None]
  - Fungal infection [None]
  - Urinary tract infection [None]
  - Gastrointestinal disorder [None]

NARRATIVE: CASE EVENT DATE: 20181220
